FAERS Safety Report 9426834 (Version 1)
Quarter: 2013Q3

REPORT INFORMATION
  Report Type: Spontaneous
  Country: US (occurrence: US)
  Receive Date: 20130730
  Receipt Date: 20130730
  Transmission Date: 20140515
  Serious: No
  Sender: FDA-Public Use
  Company Number: US-SANOFI-AVENTIS-2013SA003356

PATIENT
  Age: 61 Year
  Sex: Male

DRUGS (1)
  1. ZOLPIDEM TARTRATE [Suspect]
     Route: 048
     Dates: start: 2011

REACTIONS (2)
  - Insomnia [Recovered/Resolved]
  - Drug ineffective [Recovered/Resolved]
